FAERS Safety Report 8935119 (Version 2)
Quarter: 2012Q4

REPORT INFORMATION
  Report Type: Report from Study
  Country: US (occurrence: US)
  Receive Date: 20121129
  Receipt Date: 20121213
  Transmission Date: 20130627
  Serious: Yes (Hospitalization)
  Sender: FDA-Public Use
  Company Number: US-JNJFOC-20121111553

PATIENT
  Age: 19 Year
  Sex: Female
  Weight: 62.4 kg

DRUGS (10)
  1. REMICADE [Suspect]
     Indication: INFLAMMATORY BOWEL DISEASE
     Route: 042
     Dates: start: 20110103
  2. REMICADE [Suspect]
     Indication: INFLAMMATORY BOWEL DISEASE
     Route: 042
     Dates: start: 20060511
  3. PROBIOTICS [Concomitant]
  4. TRI LO SPRINTEC [Concomitant]
  5. VITAMIN D [Concomitant]
  6. FISH OIL [Concomitant]
  7. ALBUTEROL [Concomitant]
  8. FOLIC ACID [Concomitant]
  9. CITRACAL [Concomitant]
  10. MULTIVIT [Concomitant]

REACTIONS (1)
  - Abdominal adhesions [Recovered/Resolved]
